FAERS Safety Report 6656926-1 (Version None)
Quarter: 2010Q1

REPORT INFORMATION
  Report Type: 
  Country: None (occurrence: None)
  Receive Date: 20100329
  Receipt Date: 20100323
  Transmission Date: 20100710
  Serious: Yes (Other)
  Sender: FDA-Public Use
  Company Number: KR-BRISTOL-MYERS SQUIBB COMPANY-15031701

PATIENT
  Age: 3 Decade
  Sex: Female

DRUGS (1)
  1. BARACLUDE [Suspect]
     Dosage: FORMULATION: TABLETS
     Route: 048

REACTIONS (3)
  - DEPRESSION [None]
  - MENTAL DISORDER [None]
  - SUICIDAL IDEATION [None]
